FAERS Safety Report 5741921-7 (Version None)
Quarter: 2008Q2

REPORT INFORMATION
  Report Type: 
  Country: None (occurrence: None)
  Receive Date: 20080519
  Receipt Date: 20080506
  Transmission Date: 20081010
  Serious: Yes (Hospitalization, Other)
  Sender: FDA-Public Use
  Company Number: US-BAYER-200818776NA

PATIENT
  Age: 28 Year
  Sex: Female
  Weight: 51 kg

DRUGS (1)
  1. MIRENA [Suspect]
     Indication: CONTRACEPTION
     Route: 015
     Dates: start: 20080328, end: 20080330

REACTIONS (4)
  - IUD MIGRATION [None]
  - PAIN [None]
  - PROCEDURAL PAIN [None]
  - UTERINE RUPTURE [None]
